FAERS Safety Report 8365829-6 (Version None)
Quarter: 2012Q2

REPORT INFORMATION
  Report Type: 
  Country: None (occurrence: None)
  Receive Date: 20120515
  Receipt Date: 20120503
  Transmission Date: 20120825
  Serious: Yes (Hospitalization)
  Sender: FDA-Public Use
  Company Number: GGEL20120200192

PATIENT
  Age: 68 Year
  Sex: Female

DRUGS (3)
  1. PRAVASTATIN SODIUM [Suspect]
     Indication: HYPERLIPIDAEMIA
     Dosage: 40 MILLIGRAM, 1 IN 1 D, BY MOUTH
     Dates: start: 20110901, end: 20111005
  2. WARFARIN SODIUM [Concomitant]
  3. METOPROLOL SUCCINATE [Concomitant]

REACTIONS (3)
  - HEMIPLEGIA [None]
  - MUSCULAR WEAKNESS [None]
  - MUSCLE SPASMS [None]
